FAERS Safety Report 14901637 (Version 1)
Quarter: 2018Q2

REPORT INFORMATION
  Report Type: Spontaneous
  Country: US (occurrence: US)
  Receive Date: 20180429
  Receipt Date: 20180429
  Transmission Date: 20180711
  Serious: Yes (Other)
  Sender: FDA-Public Use
  Company Number: None

PATIENT
  Age: 39 Year
  Sex: Female
  Weight: 96.75 kg

DRUGS (7)
  1. NATPARA (PARATHYROID HORMONE) [Suspect]
     Active Substance: PARATHYROID HORMONE
     Indication: HYPOPARATHYROIDISM
     Dosage: ?          QUANTITY:14 INJECTION(S);?
     Route: 058
     Dates: start: 20170801, end: 20170904
  2. XANAX [Concomitant]
     Active Substance: ALPRAZOLAM
  3. SYNTHROID [Concomitant]
     Active Substance: LEVOTHYROXINE SODIUM
  4. ESTRADIOL. [Concomitant]
     Active Substance: ESTRADIOL
  5. CALCIUM [Concomitant]
     Active Substance: CALCIUM
  6. CALCITRIOL. [Concomitant]
     Active Substance: CALCITRIOL
  7. MAGNESIUM [Concomitant]
     Active Substance: MAGNESIUM

REACTIONS (3)
  - Bone density decreased [None]
  - Spinal fracture [None]
  - Abdominal mass [None]

NARRATIVE: CASE EVENT DATE: 20170904
